FAERS Safety Report 5832194-5 (Version None)
Quarter: 2008Q3

REPORT INFORMATION
  Report Type: 
  Country: None (occurrence: None)
  Receive Date: 20080804
  Receipt Date: 20080724
  Transmission Date: 20090109
  Serious: Yes (Hospitalization, Other)
  Sender: FDA-Public Use
  Company Number: FR-JNJFOC-20080706325

PATIENT
  Age: 21 Year
  Sex: Male

DRUGS (3)
  1. REMICADE [Suspect]
     Dosage: 9TH INFUSION
     Route: 042
  2. REMICADE [Suspect]
     Dosage: 7 INFUSIONS ON UNKNOWN DATES
     Route: 042
  3. REMICADE [Suspect]
     Indication: CROHN'S DISEASE
     Dosage: 1ST INFUSION
     Route: 042

REACTIONS (5)
  - DRUG SPECIFIC ANTIBODY PRESENT [None]
  - GLOMERULONEPHRITIS PROLIFERATIVE [None]
  - KIDNEY FIBROSIS [None]
  - NEPHRITIS INTERSTITIAL [None]
  - RENAL FAILURE [None]
